FAERS Safety Report 7249073-1 (Version None)
Quarter: 2011Q1

REPORT INFORMATION
  Report Type: 
  Country: None (occurrence: None)
  Receive Date: 20110128
  Receipt Date: 20110120
  Transmission Date: 20110831
  Serious: Yes (Life-Threatening)
  Sender: FDA-Public Use
  Company Number: NL-CELGENEUS-114-21880-10112945

PATIENT
  Sex: Female
  Weight: 70 kg

DRUGS (11)
  1. HALOPERIDOL [Concomitant]
     Indication: DELIRIUM
     Route: 051
     Dates: start: 20101114, end: 20101124
  2. AMBISOME [Concomitant]
     Route: 055
     Dates: start: 20101018, end: 20101122
  3. FLUCONAZOLE [Concomitant]
     Route: 048
     Dates: start: 20101018, end: 20101112
  4. ISOSORBIDE MONONITRATE [Concomitant]
     Route: 048
     Dates: start: 20101018, end: 20101122
  5. DIGOXIN [Concomitant]
     Route: 048
     Dates: start: 20101018, end: 20101122
  6. NEBIVOLOL [Concomitant]
     Route: 048
     Dates: start: 20101018, end: 20101122
  7. ACETAMINOPHEN [Concomitant]
     Route: 048
     Dates: start: 20101114, end: 20101120
  8. REVLIMID [Suspect]
     Route: 048
     Dates: start: 20101020, end: 20101108
  9. VANCOMYCIN [Concomitant]
     Dosage: 500-750 MG
     Route: 051
     Dates: start: 20101112, end: 20101128
  10. CIPROXIN [Concomitant]
     Route: 048
     Dates: start: 20101118, end: 20101122
  11. CYTARABINE [Suspect]
     Route: 051
     Dates: start: 20101020, end: 20101025

REACTIONS (1)
  - THROMBOTIC THROMBOCYTOPENIC PURPURA [None]
